FAERS Safety Report 9352548 (Version 1)
Quarter: 2013Q2

REPORT INFORMATION
  Report Type: Spontaneous
  Country: US (occurrence: US)
  Receive Date: 20130618
  Receipt Date: 20130618
  Transmission Date: 20140414
  Serious: No
  Sender: FDA-Public Use
  Company Number: US-009507513-1306USA006460

PATIENT
  Sex: Male

DRUGS (1)
  1. MIRALAX [Suspect]
     Indication: COLONOSCOPY
     Dosage: 238 G, ONCE
     Route: 048
     Dates: start: 20130609

REACTIONS (3)
  - Abdominal distension [Not Recovered/Not Resolved]
  - Overdose [Unknown]
  - Off label use [Unknown]
